FAERS Safety Report 9905575 (Version 1)
Quarter: 2013Q2

REPORT INFORMATION
  Report Type: Spontaneous
  Country: US (occurrence: None)
  Receive Date: 20130613
  Receipt Date: 20130613
  Transmission Date: 20140414
  Serious: Yes (Other)
  Sender: FDA-Public Use
  Company Number: VISP-PR-1208S-0339

PATIENT
  Age: 54 Year
  Sex: Male

DRUGS (2)
  1. VISIPAQUE (IODIXANOL) [Suspect]
     Indication: AORTIC DISSECTION
     Dosage: 100 ML, SINGLE DOSE, INTRAVENOUS
     Route: 042
     Dates: start: 20120803, end: 20120803
  2. VISIPAQUE (IODIXANOL) [Suspect]
     Indication: DIAGNOSTIC PROCEDURE
     Dosage: 100 ML, SINGLE DOSE, INTRAVENOUS
     Route: 042
     Dates: start: 20120803, end: 20120803

REACTIONS (4)
  - Anaphylactic reaction [None]
  - Swollen tongue [None]
  - Throat tightness [None]
  - Pruritus [None]
